FAERS Safety Report 4620418-1 (Version None)
Quarter: 2005Q1

REPORT INFORMATION
  Report Type: 
  Country: None (occurrence: None)
  Receive Date: 20050324
  Receipt Date: 20050310
  Transmission Date: 20050727
  Serious: Yes (Hospitalization)
  Sender: FDA-Public Use
  Company Number: 106180ISR

PATIENT
  Age: 41 Year
  Sex: Female

DRUGS (3)
  1. FLUOROURACIL [Suspect]
     Indication: BREAST CANCER
     Dosage: 500 MG/M2 INTRAVENOUS (NOS)
     Route: 042
     Dates: start: 20050118, end: 20050118
  2. CYCLOPHOSPHAMIDE [Suspect]
     Indication: BREAST CANCER
     Dosage: 75 MG/M2 ORAL
     Route: 048
     Dates: start: 20041214, end: 20050125
  3. EPIRUBICIN [Suspect]
     Indication: BREAST CANCER
     Dosage: 60 MG/M2 INTRAVENOUS (NOS)
     Route: 042
     Dates: start: 20050118, end: 20050118

REACTIONS (1)
  - ERYSIPELAS [None]
